FAERS Safety Report 12147482 (Version 2)
Quarter: 2021Q3

REPORT INFORMATION
  Report Type: Spontaneous
  Country: CA (occurrence: CA)
  Receive Date: 20160304
  Receipt Date: 20210729
  Transmission Date: 20211014
  Serious: Yes (Hospitalization, Other)
  Sender: FDA-Public Use
  Company Number: CA-GLAXOSMITHKLINE-CA2016GSK029540

PATIENT
  Age: 22 Year
  Sex: Female

DRUGS (40)
  1. LITHIUM. [Suspect]
     Active Substance: LITHIUM
     Indication: SCHIZOPHRENIA
     Dosage: UNK
  2. LITHIUM. [Suspect]
     Active Substance: LITHIUM
     Indication: AFFECTIVE DISORDER
  3. OLANZAPINE. [Suspect]
     Active Substance: OLANZAPINE
     Dosage: 10 MG
  4. OLANZAPINE. [Suspect]
     Active Substance: OLANZAPINE
     Dosage: 5 MG, 1D
  5. OLANZAPINE. [Suspect]
     Active Substance: OLANZAPINE
     Dosage: 15 MG
  6. QUETIAPINE FUMARATE. [Suspect]
     Active Substance: QUETIAPINE FUMARATE
     Indication: SCHIZOPHRENIA
     Dosage: 5 MG, 1D
     Route: 048
  7. QUETIAPINE FUMARATE. [Suspect]
     Active Substance: QUETIAPINE FUMARATE
     Dosage: 5 MG, 1D
     Route: 048
  8. RISPERDAL [Suspect]
     Active Substance: RISPERIDONE
     Indication: SCHIZOPHRENIA
     Dosage: UNK
  9. VALPROATE [Concomitant]
     Active Substance: VALPROIC ACID
     Indication: SCHIZOPHRENIA
     Dosage: UNK
  10. LAMOTRIGINE. [Suspect]
     Active Substance: LAMOTRIGINE
     Indication: AFFECTIVE DISORDER
  11. RISPERIDONE. [Suspect]
     Active Substance: RISPERIDONE
     Indication: SCHIZOPHRENIA
     Dosage: 25 MG, EVERY 2 WEEKS
     Route: 030
  12. ABILIFY [Suspect]
     Active Substance: ARIPIPRAZOLE
     Indication: SCHIZOPHRENIA
     Dosage: UNK
  13. BENZATROPINE [Suspect]
     Active Substance: BENZTROPINE
     Indication: SCHIZOPHRENIA
  14. LOXAPINE. [Suspect]
     Active Substance: LOXAPINE
     Indication: SCHIZOPHRENIA
     Dosage: UNK
  15. RISPERDAL CONSTA [Suspect]
     Active Substance: RISPERIDONE
     Indication: SCHIZOAFFECTIVE DISORDER
     Dosage: 25 MG (1 EVERY 2 WEEKS)
     Route: 030
  16. LAMOTRIGINE. [Suspect]
     Active Substance: LAMOTRIGINE
     Indication: SCHIZOPHRENIA
     Dosage: UNK
  17. OLANZAPINE. [Suspect]
     Active Substance: OLANZAPINE
     Dosage: UNK
  18. LOXAPINE. [Suspect]
     Active Substance: LOXAPINE
     Dosage: UNK
  19. VALPROIC ACID. [Suspect]
     Active Substance: VALPROIC ACID
     Indication: MOOD ALTERED
  20. ZIPRASIDONE HYDROCHLORIDE. [Suspect]
     Active Substance: ZIPRASIDONE HYDROCHLORIDE
     Indication: PRODUCT USED FOR UNKNOWN INDICATION
     Dosage: UNK
  21. LAMOTRIGINE. [Suspect]
     Active Substance: LAMOTRIGINE
     Indication: MOOD ALTERED
  22. LITHIUM. [Suspect]
     Active Substance: LITHIUM
     Indication: MOOD ALTERED
  23. OLANZAPINE. [Suspect]
     Active Substance: OLANZAPINE
     Indication: SCHIZOPHRENIA
     Dosage: 5 MG, 1D
  24. LOXAPINE. [Suspect]
     Active Substance: LOXAPINE
     Dosage: 50 MG, QD
  25. QUETIAPINE FUMARATE. [Suspect]
     Active Substance: QUETIAPINE FUMARATE
     Indication: SCHIZOAFFECTIVE DISORDER
     Dosage: UNK
     Route: 048
  26. RISPERDAL CONSTA [Suspect]
     Active Substance: RISPERIDONE
     Dosage: UNK
     Route: 030
  27. ZYPREXA ZYDIS [Suspect]
     Active Substance: OLANZAPINE
     Indication: PRODUCT USED FOR UNKNOWN INDICATION
     Dosage: 10 MG
  28. OLANZAPINE. [Suspect]
     Active Substance: OLANZAPINE
     Dosage: 15 MG
  29. ARIPIPRAZOLE. [Suspect]
     Active Substance: ARIPIPRAZOLE
     Indication: SCHIZOPHRENIA
     Dosage: UNK
     Route: 030
  30. OLANZAPINE. [Suspect]
     Active Substance: OLANZAPINE
     Indication: SCHIZOPHRENIA
     Dosage: SINGLE DOSE
  31. QUETIAPINE. [Suspect]
     Active Substance: QUETIAPINE
     Indication: SCHIZOPHRENIA
     Dosage: UNK
  32. QUETIAPINE FUMARATE. [Suspect]
     Active Substance: QUETIAPINE FUMARATE
     Dosage: UNK
     Route: 048
  33. RISPERDAL CONSTA [Suspect]
     Active Substance: RISPERIDONE
     Dosage: UNK
     Route: 030
  34. ABILIFY [Suspect]
     Active Substance: ARIPIPRAZOLE
     Indication: SCHIZOAFFECTIVE DISORDER
  35. BENZATROPINE [Suspect]
     Active Substance: BENZTROPINE
     Indication: SCHIZOPHRENIA
     Dosage: UNK
  36. LOXAPINE. [Suspect]
     Active Substance: LOXAPINE
     Indication: SCHIZOPHRENIA
     Dosage: 50 MG, QD,ON THE 13TH DAY OF THE INTERVAL, FOR 3 DAYS
  37. VALPROIC ACID. [Suspect]
     Active Substance: VALPROIC ACID
     Indication: SCHIZOAFFECTIVE DISORDER
     Dosage: UNK
  38. OLANZAPINE. [Suspect]
     Active Substance: OLANZAPINE
     Dosage: UNK
  39. OLANZAPINE. [Suspect]
     Active Substance: OLANZAPINE
     Dosage: 10 MG
  40. RISPERDAL CONSTA [Suspect]
     Active Substance: RISPERIDONE
     Indication: SCHIZOPHRENIA
     Dosage: 25 MG (1 EVERY 2 WEEKS)
     Route: 030

REACTIONS (2)
  - Oculogyric crisis [Recovered/Resolved]
  - Disease recurrence [Recovered/Resolved]
